FAERS Safety Report 12570252 (Version 1)
Quarter: 2016Q3

REPORT INFORMATION
  Report Type: Spontaneous
  Country: US (occurrence: None)
  Receive Date: 20160718
  Receipt Date: 20160718
  Transmission Date: 20161109
  Serious: No
  Sender: FDA-Public Use
  Company Number: None

PATIENT
  Age: 53 Year
  Sex: Female
  Weight: 60.33 kg

DRUGS (5)
  1. NPD [Suspect]
     Active Substance: DEXAMETHASONE\NEOMYCIN SULFATE\POLYMYXIN B SULFATE
  2. FLAXSEED [Concomitant]
     Active Substance: FLAX SEED
  3. LOTEMAX [Suspect]
     Active Substance: LOTEPREDNOL ETABONATE
  4. RESTASIS [Suspect]
     Active Substance: CYCLOSPORINE
     Indication: DRY EYE
     Route: 031
  5. FISH OIL [Concomitant]
     Active Substance: FISH OIL

REACTIONS (1)
  - Conjunctivitis viral [None]

NARRATIVE: CASE EVENT DATE: 20160618
